FAERS Safety Report 21936914 (Version 3)
Quarter: 2023Q1

REPORT INFORMATION
  Report Type: Spontaneous
  Country: CA (occurrence: CA)
  Receive Date: 20230201
  Receipt Date: 20230207
  Transmission Date: 20230417
  Serious: Yes (Other)
  Sender: FDA-Public Use
  Company Number: CA-PFIZER INC-PV202300017260

PATIENT
  Age: 74 Year
  Sex: Female

DRUGS (2)
  1. IBRANCE [Suspect]
     Active Substance: PALBOCICLIB
     Dosage: 75 MG, ALTERNATE DAY (1 TAB EVERY OTHER DAY, 15 TABS AT EACH CYCLE)
     Dates: start: 20180201
  2. EXEMESTANE [Suspect]
     Active Substance: EXEMESTANE
     Dosage: UNK

REACTIONS (5)
  - Neutropenia [Unknown]
  - Cytopenia [Unknown]
  - Neoplasm progression [Unknown]
  - Full blood count abnormal [Unknown]
  - Off label use [Unknown]
